FAERS Safety Report 18768581 (Version 1)
Quarter: 2021Q1

REPORT INFORMATION
  Report Type: Spontaneous
  Country: US (occurrence: US)
  Receive Date: 20210121
  Receipt Date: 20210121
  Transmission Date: 20210419
  Serious: Yes (Other)
  Sender: FDA-Public Use
  Company Number: US-SA-2021SA016306

PATIENT
  Age: 44 Year
  Sex: Male

DRUGS (1)
  1. ZANTAC [Suspect]
     Active Substance: RANITIDINE HYDROCHLORIDE
     Dosage: UNK, QD
     Dates: start: 199601, end: 202001

REACTIONS (3)
  - Neoplasm malignant [Unknown]
  - Hepatic cancer stage IV [Unknown]
  - Gastric cancer stage IV [Not Recovered/Not Resolved]

NARRATIVE: CASE EVENT DATE: 20191213
